FAERS Safety Report 25864336 (Version 1)
Quarter: 2025Q3

REPORT INFORMATION
  Report Type: Spontaneous
  Country: US (occurrence: None)
  Receive Date: 20250929
  Receipt Date: 20250929
  Transmission Date: 20251021
  Serious: Yes (Other)
  Sender: FDA-CTU
  Company Number: None

PATIENT
  Age: 62 Year
  Sex: Female

DRUGS (4)
  1. VORICONAZOLE [Suspect]
     Active Substance: VORICONAZOLE
  2. PREVYMIS [Suspect]
     Active Substance: LETERMOVIR
  3. INQOVI [Suspect]
     Active Substance: CEDAZURIDINE\DECITABINE
  4. TACROLIMUS [Suspect]
     Active Substance: TACROLIMUS

REACTIONS (8)
  - Off label use [None]
  - Therapy change [None]
  - Haemoglobin decreased [None]
  - Platelet count decreased [None]
  - Therapy cessation [None]
  - Sarcoma [None]
  - Tonsillar disorder [None]
  - Fungal infection [None]
